FAERS Safety Report 23639834 (Version 2)
Quarter: 2024Q1

REPORT INFORMATION
  Report Type: Spontaneous
  Country: US (occurrence: US)
  Receive Date: 20240316
  Receipt Date: 20240318
  Transmission Date: 20240410
  Serious: Yes (Hospitalization)
  Sender: FDA-Public Use
  Company Number: US-TEVA-VS-3170677

PATIENT
  Age: 39 Year
  Sex: Male

DRUGS (1)
  1. CLOZAPINE [Suspect]
     Active Substance: CLOZAPINE
     Indication: Product used for unknown indication
     Route: 065

REACTIONS (12)
  - Hospitalisation [Unknown]
  - Blood sodium decreased [Unknown]
  - Protein total decreased [Unknown]
  - Blood alkaline phosphatase decreased [Unknown]
  - Aspartate aminotransferase decreased [Unknown]
  - Haemoglobin decreased [Unknown]
  - Haematocrit decreased [Recovering/Resolving]
  - Platelet count decreased [Unknown]
  - Monocyte count increased [Unknown]
  - Eosinophil count increased [Unknown]
  - Thyroxine decreased [Unknown]
  - Ammonia increased [Unknown]
